FAERS Safety Report 6252673-9 (Version None)
Quarter: 2009Q3

REPORT INFORMATION
  Report Type: 
  Country: None (occurrence: None)
  Receive Date: 20090701
  Receipt Date: 20090626
  Transmission Date: 20100115
  Serious: Yes (Death)
  Sender: FDA-Public Use
  Company Number: PHEH2009US06824

PATIENT
  Sex: Female

DRUGS (5)
  1. GLEEVEC [Suspect]
     Indication: MYELOID LEUKAEMIA
     Dosage: 500 MG, BID
     Dates: start: 20080911
  2. ZOLOFT [Concomitant]
  3. HYDROCODONE BITARTRATE [Concomitant]
  4. ALPRAZOLAM [Concomitant]
  5. CLARINEX                                /DEN/ [Concomitant]

REACTIONS (1)
  - DEATH [None]
